FAERS Safety Report 8069253-5 (Version None)
Quarter: 2012Q1

REPORT INFORMATION
  Report Type: 
  Country: None (occurrence: None)
  Receive Date: 20120125
  Receipt Date: 20120118
  Transmission Date: 20120608
  Serious: Yes (Hospitalization)
  Sender: FDA-Public Use
  Company Number: GB-JNJFOC-20111106176

PATIENT
  Sex: Female

DRUGS (2)
  1. SIMPONI [Suspect]
     Indication: PSORIATIC ARTHROPATHY
     Route: 058
     Dates: start: 20111017
  2. SIMPONI [Suspect]
     Route: 058

REACTIONS (3)
  - SYNOVIAL CYST [None]
  - INFECTED CYST [None]
  - PSORIATIC ARTHROPATHY [None]
